FAERS Safety Report 11693912 (Version 2)
Quarter: 2016Q3

REPORT INFORMATION
  Report Type: Spontaneous
  Country: US (occurrence: US)
  Receive Date: 20151103
  Receipt Date: 20160824
  Transmission Date: 20161109
  Serious: Yes (Death)
  Sender: FDA-Public Use
  Company Number: US-UNITED THERAPEUTICS-UNT-2015-013722

PATIENT
  Sex: Female
  Weight: 69.84 kg

DRUGS (2)
  1. REVATIO [Concomitant]
     Active Substance: SILDENAFIL CITRATE
     Indication: PRODUCT USED FOR UNKNOWN INDICATION
  2. TYVASO [Suspect]
     Active Substance: TREPROSTINIL
     Indication: PULMONARY ARTERIAL HYPERTENSION
     Dosage: 54-72 UG, QID
     Dates: start: 20130821

REACTIONS (4)
  - End stage renal disease [Fatal]
  - Pulmonary arterial hypertension [Fatal]
  - Product use issue [Unknown]
  - Ascites [Unknown]

NARRATIVE: CASE EVENT DATE: 2015
